FAERS Safety Report 5685104-8 (Version None)
Quarter: 2008Q1

REPORT INFORMATION
  Report Type: 
  Country: None (occurrence: None)
  Receive Date: 20080328
  Receipt Date: 20080318
  Transmission Date: 20080703
  Serious: Yes (Other)
  Sender: FDA-Public Use
  Company Number: AU-PFIZER INC-2005139130

PATIENT
  Sex: Female
  Weight: 70 kg

DRUGS (7)
  1. CABERGOLINE [Suspect]
     Indication: PARKINSON'S DISEASE
     Route: 048
     Dates: start: 20030815, end: 20040801
  2. COMTAN [Concomitant]
  3. LEXAPRO [Concomitant]
  4. DOMPERIDONE [Concomitant]
  5. SINEMET [Concomitant]
  6. SINEMET CR [Concomitant]
  7. TEMAZEPAM [Concomitant]

REACTIONS (6)
  - CHEST PAIN [None]
  - DECREASED APPETITE [None]
  - DYSPNOEA EXERTIONAL [None]
  - PLEURAL FIBROSIS [None]
  - PNEUMONITIS [None]
  - WEIGHT DECREASED [None]
